FAERS Safety Report 18478608 (Version 2)
Quarter: 2025Q2

REPORT INFORMATION
  Report Type: Spontaneous
  Country: GB (occurrence: GB)
  Receive Date: 20201109
  Receipt Date: 20250417
  Transmission Date: 20250717
  Serious: Yes (Death, Other)
  Sender: AUROBINDO
  Company Number: GB-LDELTA-NLLD0034585

PATIENT
  Age: 43 Year
  Sex: Male

DRUGS (3)
  1. TRAMADOL [Suspect]
     Active Substance: TRAMADOL
     Indication: Product used for unknown indication
     Route: 065
  2. CLOZAPINE [Suspect]
     Active Substance: CLOZAPINE
     Indication: Schizophrenia
     Route: 048
     Dates: start: 20050908, end: 20200629
  3. SERTRALINE [Concomitant]
     Active Substance: SERTRALINE HYDROCHLORIDE
     Indication: Product used for unknown indication
     Route: 065

REACTIONS (6)
  - Arteriosclerosis coronary artery [Fatal]
  - Gastritis erosive [Fatal]
  - Erosive duodenitis [Fatal]
  - Intentional overdose [Fatal]
  - Postmortem blood drug level increased [Fatal]
  - Splenic cyst [Fatal]

NARRATIVE: CASE EVENT DATE: 20200629
